FAERS Safety Report 13289082 (Version 1)
Quarter: 2017Q1

REPORT INFORMATION
  Report Type: Spontaneous
  Country: US (occurrence: US)
  Receive Date: 20170302
  Receipt Date: 20170302
  Transmission Date: 20170428
  Serious: Yes (Other)
  Sender: FDA-Public Use
  Company Number: US-AMGEN-USASP2017031083

PATIENT
  Age: 17 Year
  Sex: Male

DRUGS (3)
  1. ZANTAC [Concomitant]
     Active Substance: RANITIDINE HYDROCHLORIDE
     Dosage: UNK
  2. DICLOFENAC SODIUM. [Concomitant]
     Active Substance: DICLOFENAC SODIUM
     Dosage: UNK
  3. ENBREL [Suspect]
     Active Substance: ETANERCEPT
     Indication: ANKYLOSING SPONDYLITIS
     Dosage: 2 ML (50 MG), EVERY SEVEN DAYS
     Route: 058

REACTIONS (6)
  - Ankylosing spondylitis [Unknown]
  - Malaise [Unknown]
  - Nasopharyngitis [Unknown]
  - Influenza [Unknown]
  - Pharyngitis streptococcal [Unknown]
  - Off label use [Unknown]

NARRATIVE: CASE EVENT DATE: 2017
